FAERS Safety Report 13515475 (Version 8)
Quarter: 2017Q3

REPORT INFORMATION
  Report Type: Report from Study
  Country: GB (occurrence: GB)
  Receive Date: 20170504
  Receipt Date: 20170920
  Transmission Date: 20171127
  Serious: Yes (Hospitalization, Other)
  Sender: FDA-Public Use
  Company Number: PHHY2015GB126899

PATIENT
  Age: 72 Year
  Sex: Male
  Weight: 59.3 kg

DRUGS (6)
  1. ZOMORPH [Concomitant]
     Active Substance: MORPHINE SULFATE
     Indication: ANALGESIC THERAPY
     Dosage: 10 MG, BID
     Route: 048
     Dates: start: 20140401
  2. VOTRIENT [Suspect]
     Active Substance: PAZOPANIB HYDROCHLORIDE
     Indication: METASTATIC RENAL CELL CARCINOMA
     Dosage: 800 MG, QD
     Route: 048
     Dates: start: 20141006, end: 20141019
  3. METOCLOPRAMIDE. [Concomitant]
     Active Substance: METOCLOPRAMIDE
     Indication: NAUSEA
  4. VOTRIENT [Suspect]
     Active Substance: PAZOPANIB HYDROCHLORIDE
     Dosage: 600 MG, QD
     Route: 048
     Dates: start: 20141020, end: 20141107
  5. MORPHINE SULFATE. [Concomitant]
     Active Substance: MORPHINE SULFATE
     Indication: PAIN
     Dosage: 5 ML, PRN(2-4 HRS)
     Route: 048
     Dates: start: 20140401
  6. METOCLOPRAMIDE. [Concomitant]
     Active Substance: METOCLOPRAMIDE
     Indication: VOMITING
     Dosage: 10 MG, TID (PRN)
     Route: 048
     Dates: start: 20141006

REACTIONS (22)
  - Ejection fraction decreased [Not Recovered/Not Resolved]
  - Dyspnoea [Not Recovered/Not Resolved]
  - Ventricular hypokinesia [Unknown]
  - Fatigue [Not Recovered/Not Resolved]
  - Electrocardiogram T wave inversion [Unknown]
  - Lung consolidation [Unknown]
  - Chest discomfort [Unknown]
  - Embolism [Recovered/Resolved with Sequelae]
  - Pleural effusion [Unknown]
  - Cardiac failure [Recovered/Resolved]
  - Tachycardia [Unknown]
  - Pericardial effusion [Unknown]
  - Left ventricular dysfunction [Recovering/Resolving]
  - Aortic valve disease [Unknown]
  - Oedema peripheral [Not Recovered/Not Resolved]
  - Abdominal pain [Unknown]
  - Fibrin D dimer increased [Unknown]
  - Pulmonary embolism [Recovering/Resolving]
  - Chest pain [Recovered/Resolved]
  - Lung infection [Recovered/Resolved with Sequelae]
  - Pneumonia [Recovered/Resolved with Sequelae]
  - Mitral valve incompetence [Recovered/Resolved with Sequelae]

NARRATIVE: CASE EVENT DATE: 20141106
